FAERS Safety Report 21962300 (Version 1)
Quarter: 2023Q1

REPORT INFORMATION
  Report Type: Spontaneous
  Country: US (occurrence: US)
  Receive Date: 20230207
  Receipt Date: 20230207
  Transmission Date: 20230417
  Serious: No
  Sender: FDA-Public Use
  Company Number: US-PFIZER INC-PV202300021581

PATIENT
  Age: 72 Year
  Sex: Female

DRUGS (7)
  1. DIFLUCAN [Suspect]
     Active Substance: FLUCONAZOLE
     Indication: Fungal infection
     Dosage: UNK
     Route: 065
  2. CABOMETYX [Suspect]
     Active Substance: CABOZANTINIB S-MALATE
     Indication: Renal cell carcinoma stage IV
     Dosage: 20 MG, DAILY (20 MG, QD)
     Route: 048
     Dates: start: 202202
  3. CABOMETYX [Suspect]
     Active Substance: CABOZANTINIB S-MALATE
     Dosage: 20 MG, DAILY (20 MG, QD)
     Route: 048
     Dates: end: 20230120
  4. OPDIVO [Suspect]
     Active Substance: NIVOLUMAB
     Indication: Renal cell carcinoma stage IV
     Dosage: UNK UNK, MONTHLY (UNK, Q4WEEKS)
     Route: 065
     Dates: start: 20220103, end: 20220325
  5. NIACIN [Suspect]
     Active Substance: NIACIN
     Indication: Fungal infection
     Dosage: UNK
     Route: 065
  6. SYNTHROID [Concomitant]
     Active Substance: LEVOTHYROXINE SODIUM
     Dosage: UNK
  7. OMEPRAZOLE [Concomitant]
     Active Substance: OMEPRAZOLE
     Dosage: UNK

REACTIONS (13)
  - Gastrointestinal disorder [Unknown]
  - Hyperglycaemia [Unknown]
  - Dysgeusia [Not Recovered/Not Resolved]
  - Hypertension [Recovered/Resolved]
  - Fatigue [Unknown]
  - Alopecia [Unknown]
  - Erythema [Unknown]
  - Dry mouth [Unknown]
  - Oral discomfort [Not Recovered/Not Resolved]
  - Insomnia [Unknown]
  - Weight decreased [Unknown]
  - Alanine aminotransferase increased [Unknown]
  - Aspartate aminotransferase increased [Unknown]

NARRATIVE: CASE EVENT DATE: 20220201
